FAERS Safety Report 11090996 (Version 1)
Quarter: 2015Q2

REPORT INFORMATION
  Report Type: Spontaneous
  Country: US (occurrence: None)
  Receive Date: 20150504
  Receipt Date: 20150504
  Transmission Date: 20150821
  Serious: Yes (Life-Threatening, Hospitalization)
  Sender: FDA-Public Use
  Company Number: None

PATIENT
  Age: 42 Year
  Sex: Female
  Weight: 145 kg

DRUGS (4)
  1. OMEPRAZOLE. [Concomitant]
     Active Substance: OMEPRAZOLE
  2. SUCRALFATE. [Concomitant]
     Active Substance: SUCRALFATE
  3. IOHEXOL [Suspect]
     Active Substance: IOHEXOL
     Indication: COMPUTERISED TOMOGRAM ABDOMEN
     Route: 042
     Dates: start: 20141104
  4. IOHEXOL [Suspect]
     Active Substance: IOHEXOL
     Indication: SCAN WITH CONTRAST
     Route: 042
     Dates: start: 20141104

REACTIONS (10)
  - Contrast media allergy [None]
  - Respiratory failure [None]
  - Feeling abnormal [None]
  - Acute pulmonary oedema [None]
  - Foaming at mouth [None]
  - Nausea [None]
  - Anaphylactic reaction [None]
  - Hypoxia [None]
  - Dizziness [None]
  - Cough [None]

NARRATIVE: CASE EVENT DATE: 20141104
